FAERS Safety Report 23789340 (Version 2)
Quarter: 2024Q2

REPORT INFORMATION
  Report Type: Report from Study
  Country: US (occurrence: US)
  Receive Date: 20240426
  Receipt Date: 20240430
  Transmission Date: 20240715
  Serious: Yes (Death)
  Sender: FDA-Public Use
  Company Number: US-ABBVIE-5735513

PATIENT
  Age: 76 Year
  Sex: Male
  Weight: 74 kg

DRUGS (23)
  1. VENCLEXTA [Suspect]
     Active Substance: VENETOCLAX
     Indication: Acute myeloid leukaemia recurrent
     Dosage: 70MG DAILY STARTING ON DAY 4?START DATE 2023 AND END DATE 2023
     Route: 048
  2. VENCLEXTA [Suspect]
     Active Substance: VENETOCLAX
     Indication: Acute myeloid leukaemia recurrent
     Dosage: TAKE 2 TABLET(S) BY MOUTH (200MG) DAILY
     Route: 048
     Dates: start: 20210629
  3. VENCLEXTA [Suspect]
     Active Substance: VENETOCLAX
     Indication: Acute myeloid leukaemia recurrent
     Dosage: DAY 1?FORM STRENGTH: 10 MG
     Route: 048
     Dates: start: 202310, end: 202310
  4. VENCLEXTA [Suspect]
     Active Substance: VENETOCLAX
     Indication: Acute myeloid leukaemia recurrent
     Dosage: DAY 2 ?FORM STRENGTH: 10 MG?START DATE 2023 AND END DATE 2023
     Route: 048
  5. VENCLEXTA [Suspect]
     Active Substance: VENETOCLAX
     Indication: Acute myeloid leukaemia recurrent
     Dosage: DAY 3?START DATE 2023 AND END DATE 2023
     Route: 048
  6. VENCLEXTA [Suspect]
     Active Substance: VENETOCLAX
     Indication: Acute myeloid leukaemia recurrent
     Dosage: TAKE 4 TAB BY MOUTH DAILY . CYCLE 1?100 MG? END DATE 2023
     Route: 048
     Dates: start: 20231005
  7. VENCLEXTA [Suspect]
     Active Substance: VENETOCLAX
     Indication: Acute myeloid leukaemia recurrent
     Dosage: THEN 200 MG PO DAILY ON DAYS 5-28?START DATE 2023 AND END DATE 2023
     Route: 048
  8. ZOVIRAX [Concomitant]
     Active Substance: ACYCLOVIR
     Indication: Product used for unknown indication
     Dosage: TAKE 1 TABLET (400 MG TOTAL) BY MOUTH 2 (TWO) TIMES DAILY.
     Route: 048
     Dates: start: 20210520, end: 20210619
  9. HYDREA [Concomitant]
     Active Substance: HYDROXYUREA
     Indication: Product used for unknown indication
     Dosage: 500 MG CAPSULE, TAKE 1 CAPSULE (500 MG TOTAL) BY MOUTH DAILY
     Route: 048
     Dates: start: 20220308
  10. PROSCAR [Concomitant]
     Active Substance: FINASTERIDE
     Indication: Product used for unknown indication
     Dosage: 5 MG TABLET, TAKE 1 TABLET (5 MG TOTAL) BY MOUTH DAILY
     Route: 048
     Dates: start: 20200629, end: 20210629
  11. ZOFRAN [Concomitant]
     Active Substance: ONDANSETRON HYDROCHLORIDE
     Indication: Product used for unknown indication
     Dosage: TAKE 8 MG BY MOUTH ONE HOUR PRIOR TO CHEMOTHERAPY APPOINTMENT
     Route: 048
     Dates: start: 20200522
  12. BACTRIM DS [Concomitant]
     Active Substance: SULFAMETHOXAZOLE\TRIMETHOPRIM
     Indication: Product used for unknown indication
     Dosage: STRENGTH: 800-160 MG PER TABLE, TAKE 1 TABLET BY MOUTH EVERY OTHER DAY
     Route: 048
     Dates: start: 20210520, end: 20210619
  13. BARACLUDE [Concomitant]
     Active Substance: ENTECAVIR
     Indication: Product used for unknown indication
     Route: 048
     Dates: start: 20211201
  14. BARACLUDE [Concomitant]
     Active Substance: ENTECAVIR
     Indication: Product used for unknown indication
     Route: 048
  15. FLOMAX [Concomitant]
     Active Substance: TAMSULOSIN HYDROCHLORIDE
     Indication: Product used for unknown indication
     Dosage: TAKE 1 CAPSULE (0.4 MG TOTAL) BY MOUTH DAILY
     Route: 048
     Dates: start: 20200629, end: 20210629
  16. AUGMENTIN [Concomitant]
     Active Substance: AMOXICILLIN\CLAVULANATE POTASSIUM
     Indication: Product used for unknown indication
     Dosage: STRENGTH: 875-125 MG PER TABLET, TAKE 1 TABLET BY MOUTH 2 (TWO) TIMES DAILY
     Route: 048
     Dates: start: 20210520, end: 20210619
  17. VITAMIN B COMPLEX [Concomitant]
     Active Substance: CYANOCOBALAMIN\DEXPANTHENOL\NIACINAMIDE\PYRIDOXINE HYDROCHLORIDE\RIBOFLAVIN 5^-PHOSPHATE SODIUM\THIA
     Indication: Product used for unknown indication
     Dosage: TAKE 1 TABLET BY MOUTH DAILY
     Route: 048
  18. PRILOSEC [Concomitant]
     Active Substance: OMEPRAZOLE MAGNESIUM
     Indication: Product used for unknown indication
     Dosage: TAKE 1 CAPSULE (20 MG TOTAL) BY MOUTH DAILY.
     Route: 048
     Dates: start: 20201214, end: 20211214
  19. DIFLUCAN [Concomitant]
     Active Substance: FLUCONAZOLE
     Indication: Product used for unknown indication
     Dosage: TAKE 1 TABLET (100 MG TOTAL) BY MOUTH DAILY FOR 14 DAYS
     Route: 048
     Dates: start: 20210520, end: 20210603
  20. PEPCID [Concomitant]
     Active Substance: FAMOTIDINE
     Indication: Product used for unknown indication
     Dosage: TAKE 1 TABLET (20 MG TOTAL) BY MOUTH 2 (TWO) TIMES DAILY
     Route: 048
  21. PEPCID [Concomitant]
     Active Substance: FAMOTIDINE
     Indication: Product used for unknown indication
     Dosage: (DISCONTINUED BY ANOTHER CLINICIAN) VISIT DIAGNOSES
  22. AZACITIDINE [Concomitant]
     Active Substance: AZACITIDINE
     Indication: Product used for unknown indication
  23. COMPAZINE [Concomitant]
     Active Substance: PROCHLORPERAZINE MALEATE
     Indication: Vomiting
     Dosage: TAKE 1 TABLET (10 MG TOTAL) BY MOUTH EVERY 6 (SIX) HOURS AS NEEDED (NAUSEA VOMITING)
     Route: 048
     Dates: start: 20200522

REACTIONS (2)
  - Death [Fatal]
  - Off label use [Unknown]

NARRATIVE: CASE EVENT DATE: 20231130
